FAERS Safety Report 7681638-5 (Version None)
Quarter: 2011Q3

REPORT INFORMATION
  Report Type: 
  Country: None (occurrence: None)
  Receive Date: 20110812
  Receipt Date: 20110805
  Transmission Date: 20111222
  Serious: Yes (Death)
  Sender: FDA-Public Use
  Company Number: PHHY2011BE70468

PATIENT
  Age: 65 Year
  Sex: Male

DRUGS (7)
  1. METFORMAX [Concomitant]
     Indication: DIABETES MELLITUS
  2. ONBREZ [Suspect]
     Indication: CHRONIC OBSTRUCTIVE PULMONARY DISEASE
     Dosage: 150 UG, UNK
     Dates: start: 20110718
  3. GLURENORM [Concomitant]
     Indication: DIABETES MELLITUS
  4. ASAFLOW [Concomitant]
  5. BISOPROLOL FUMARATE [Concomitant]
  6. PRAREDUCT [Concomitant]
     Indication: HYPERCHOLESTEROLAEMIA
  7. MICARDIS [Concomitant]
     Indication: HYPERCHOLESTEROLAEMIA

REACTIONS (2)
  - DEATH [None]
  - CIRCULATORY COLLAPSE [None]
